FAERS Safety Report 8277109-8 (Version None)
Quarter: 2012Q2

REPORT INFORMATION
  Report Type: 
  Country: None (occurrence: None)
  Receive Date: 20120412
  Receipt Date: 20120403
  Transmission Date: 20120825
  Serious: Yes (Death, Hospitalization)
  Sender: FDA-Public Use
  Company Number: JP-FRI-1000027433

PATIENT
  Sex: Male

DRUGS (8)
  1. MEMANTINE [Suspect]
     Dosage: 10 MG
     Route: 048
     Dates: start: 20110613, end: 20110619
  2. BITAFANT F [Concomitant]
     Indication: VITAMIN B1 DEFICIENCY
     Dosage: 75 MG
     Route: 048
     Dates: start: 20100901, end: 20111212
  3. ANPLAG [Concomitant]
     Indication: PERIPHERAL ARTERIAL OCCLUSIVE DISEASE
     Dosage: 300 MG
     Route: 048
     Dates: start: 20110113, end: 20111212
  4. MEMANTINE [Suspect]
     Indication: DEMENTIA
     Dosage: 5 MG
     Route: 048
     Dates: start: 20110606, end: 20110612
  5. MEMANTINE [Suspect]
     Dosage: 20 MG
     Route: 048
     Dates: start: 20110627, end: 20111012
  6. MEMANTINE [Suspect]
     Dosage: 10 MG
     Route: 048
     Dates: start: 20111013, end: 20111214
  7. ARICEPT [Concomitant]
     Indication: DEMENTIA
     Dosage: 5 MG
     Route: 048
     Dates: start: 20081021, end: 20111130
  8. MEMANTINE [Suspect]
     Dosage: 15 MG
     Route: 048
     Dates: start: 20110620, end: 20110626

REACTIONS (2)
  - JAUNDICE [None]
  - LIVER DISORDER [None]
